FAERS Safety Report 25957009 (Version 1)
Quarter: 2025Q4

REPORT INFORMATION
  Report Type: Spontaneous
  Country: US (occurrence: None)
  Receive Date: 20251023
  Receipt Date: 20251023
  Transmission Date: 20260117
  Serious: Yes (Other)
  Sender: FDA-CTU
  Company Number: None

PATIENT
  Age: 66 Year
  Sex: Female

DRUGS (1)
  1. NILOTINIB HYDROCHLORIDE ANHYDROUS [Suspect]
     Active Substance: NILOTINIB HYDROCHLORIDE ANHYDROUS
     Indication: Chronic myeloid leukaemia
     Dosage: 800 MG DAILY ORAL
     Route: 048
     Dates: start: 20250120

REACTIONS (2)
  - Hypoaesthesia [None]
  - Muscular weakness [None]

NARRATIVE: CASE EVENT DATE: 20251023
